FAERS Safety Report 14321319 (Version 1)
Quarter: 2017Q4

REPORT INFORMATION
  Report Type: Spontaneous
  Country: US (occurrence: US)
  Receive Date: 20171223
  Receipt Date: 20171223
  Transmission Date: 20180321
  Serious: No
  Sender: FDA-Public Use
  Company Number: US-AUSTARPHARMA, LLC-2037694

PATIENT
  Age: 83 Year
  Sex: Female
  Weight: 63.64 kg

DRUGS (17)
  1. CLOPIDOGREL BISULFATE. [Concomitant]
     Active Substance: CLOPIDOGREL BISULFATE
  2. BIOTIN [Concomitant]
     Active Substance: BIOTIN
  3. VITAMIN B12 [Concomitant]
     Active Substance: CYANOCOBALAMIN
  4. LEVOTHYROXINE SODIUM. [Concomitant]
     Active Substance: LEVOTHYROXINE SODIUM
  5. CALTRATE WITH VITAMIN D [Concomitant]
     Active Substance: CALCIUM CARBONATE\CHOLECALCIFEROL
  6. FUROSEMIDE. [Concomitant]
     Active Substance: FUROSEMIDE
  7. ALENDRONATE SODIUM. [Suspect]
     Active Substance: ALENDRONATE SODIUM
     Route: 048
     Dates: start: 1996
  8. METOPROLOL. [Concomitant]
     Active Substance: METOPROLOL
  9. LISINOPRIL. [Concomitant]
     Active Substance: LISINOPRIL
  10. ASPIRIN. [Concomitant]
     Active Substance: ASPIRIN
  11. LUTEIN [Concomitant]
     Active Substance: LUTEIN
  12. TAMOXIFEN CITRATE. [Concomitant]
     Active Substance: TAMOXIFEN CITRATE
  13. ATORVASTATIN CALCIUM. [Concomitant]
     Active Substance: ATORVASTATIN CALCIUM
  14. FISH OIL [Concomitant]
     Active Substance: FISH OIL
  15. PRESERVISION AREDS 2 [Concomitant]
     Active Substance: MINERALS\VITAMINS
  16. VITAMIN D3DIETARY SUPPLEMEN DIETARY SUPPLEMENT [Concomitant]
     Active Substance: ALPHA-TOCOPHEROL\CHOLECALCIFEROL
  17. STRESS FORMULA WITH ZINC [Concomitant]

REACTIONS (3)
  - Macular degeneration [Unknown]
  - Musculoskeletal stiffness [Not Recovered/Not Resolved]
  - Body height decreased [Not Recovered/Not Resolved]
